FAERS Safety Report 11712598 (Version 1)
Quarter: 2015Q4

REPORT INFORMATION
  Report Type: Spontaneous
  Country: US (occurrence: US)
  Receive Date: 20151104
  Receipt Date: 20151104
  Transmission Date: 20160304
  Serious: No
  Sender: FDA-Public Use
  Company Number: US-ELI_LILLY_AND_COMPANY-US201105007898

PATIENT
  Age: 86 Year
  Sex: Female

DRUGS (2)
  1. FORTEO [Suspect]
     Active Substance: TERIPARATIDE
     Dosage: 20 UG, 2/W
  2. FORTEO [Suspect]
     Active Substance: TERIPARATIDE
     Indication: OSTEOPOROSIS
     Dosage: 20 UG, DAILY (1/D)
     Dates: start: 201101

REACTIONS (7)
  - Ear pain [Not Recovered/Not Resolved]
  - Jaw disorder [Unknown]
  - Ear infection [Unknown]
  - Blood calcium increased [Not Recovered/Not Resolved]
  - Toothache [Unknown]
  - Pain in jaw [Unknown]
  - Oral pain [Unknown]

NARRATIVE: CASE EVENT DATE: 201105
